FAERS Safety Report 4368007-0 (Version None)
Quarter: 2004Q2

REPORT INFORMATION
  Report Type: 
  Country: None (occurrence: None)
  Receive Date: 20040527
  Receipt Date: 20040416
  Transmission Date: 20050107
  Serious: No
  Sender: FDA-Public Use
  Company Number: 205932

PATIENT
  Age: 38 Year
  Sex: Male

DRUGS (2)
  1. RAPTIVA [Suspect]
     Dosage: SEE IMAGE
     Route: 058
     Dates: start: 20040317
  2. RAPTIVA [Suspect]
     Dosage: SEE IMAGE
     Route: 058
     Dates: start: 20040414

REACTIONS (1)
  - RASH MACULAR [None]
